FAERS Safety Report 15214005 (Version 1)
Quarter: 2018Q3

REPORT INFORMATION
  Report Type: Spontaneous
  Country: US (occurrence: US)
  Receive Date: 20180730
  Receipt Date: 20180730
  Transmission Date: 20181010
  Serious: No
  Sender: FDA-Public Use
  Company Number: US-SA-2018SA199366

PATIENT
  Age: 77 Year
  Sex: Female

DRUGS (2)
  1. ALIROCUMAB PREFILLED PEN [Suspect]
     Active Substance: ALIROCUMAB
     Indication: LOW DENSITY LIPOPROTEIN INCREASED
     Dosage: 150 MG, QM
     Dates: start: 201710
  2. PRALUENT [Suspect]
     Active Substance: ALIROCUMAB
     Indication: LOW DENSITY LIPOPROTEIN INCREASED
     Dosage: 150 MG, QM
     Dates: start: 201710

REACTIONS (4)
  - Diarrhoea [Not Recovered/Not Resolved]
  - Bile output increased [Not Recovered/Not Resolved]
  - Product use issue [Unknown]
  - Foaming at mouth [Not Recovered/Not Resolved]
